FAERS Safety Report 17488095 (Version 5)
Quarter: 2020Q4

REPORT INFORMATION
  Report Type: Spontaneous
  Country: US (occurrence: US)
  Receive Date: 20200303
  Receipt Date: 20201027
  Transmission Date: 20210113
  Serious: No
  Sender: FDA-Public Use
  Company Number: US-PFIZER INC-2020094529

PATIENT
  Age: 52 Year
  Sex: Female

DRUGS (1)
  1. XELJANZ XR [Suspect]
     Active Substance: TOFACITINIB CITRATE
     Indication: RHEUMATOID ARTHRITIS
     Dosage: 11 MG, 1X/DAY
     Route: 048
     Dates: start: 20200219

REACTIONS (18)
  - Erythema [Recovered/Resolved]
  - Hypersensitivity [Recovering/Resolving]
  - Headache [Recovered/Resolved]
  - Sinus headache [Not Recovered/Not Resolved]
  - Neck pain [Unknown]
  - Oropharyngeal pain [Unknown]
  - Rash [Unknown]
  - Sinusitis [Recovering/Resolving]
  - Productive cough [Unknown]
  - Sinus pain [Unknown]
  - Fatigue [Recovered/Resolved]
  - Sinus congestion [Recovering/Resolving]
  - Sputum discoloured [Recovering/Resolving]
  - Product dose omission in error [Unknown]
  - Chest discomfort [Unknown]
  - Oropharyngeal discomfort [Unknown]
  - Eye pain [Recovering/Resolving]
  - Blood pressure increased [Unknown]

NARRATIVE: CASE EVENT DATE: 2020
